FAERS Safety Report 6528983-4 (Version None)
Quarter: 2009Q4

REPORT INFORMATION
  Report Type: 
  Country: None (occurrence: None)
  Receive Date: 20091224
  Receipt Date: 20091208
  Transmission Date: 20100525
  Serious: Yes (Hospitalization)
  Sender: FDA-Public Use
  Company Number: 2009BI040793

PATIENT
  Age: 67 Year
  Sex: Female

DRUGS (4)
  1. ZEVALIN [Suspect]
     Indication: NON-HODGKIN'S LYMPHOMA
  2. ZEVALIN [Suspect]
     Indication: STEM CELL TRANSPLANT
  3. FLUDARABINE PHOSPHATE [Concomitant]
  4. PREV MEDS [Concomitant]

REACTIONS (3)
  - CYSTITIS [None]
  - FEBRILE INFECTION [None]
  - PNEUMONIA [None]
